FAERS Safety Report 21895275 (Version 2)
Quarter: 2023Q1

REPORT INFORMATION
  Report Type: Report from Study
  Country: JP (occurrence: JP)
  Receive Date: 20230123
  Receipt Date: 20230213
  Transmission Date: 20230418
  Serious: Yes (Life-Threatening, Hospitalization, Other)
  Sender: FDA-Public Use
  Company Number: JP-JNJFOC-20220805312

PATIENT
  Age: 49 Year
  Sex: Male
  Weight: 64 kg

DRUGS (6)
  1. SIRTURO [Suspect]
     Active Substance: BEDAQUILINE FUMARATE
     Indication: Pulmonary tuberculosis
     Route: 048
     Dates: start: 20210705, end: 20210718
  2. SIRTURO [Suspect]
     Active Substance: BEDAQUILINE FUMARATE
     Indication: Pulmonary tuberculosis
     Route: 048
     Dates: start: 20210719
  3. LINEZOLID [Suspect]
     Active Substance: LINEZOLID
     Indication: Pulmonary tuberculosis
     Route: 048
     Dates: start: 20210616, end: 2022
  4. CYCLOSERINE [Suspect]
     Active Substance: CYCLOSERINE
     Indication: Pulmonary tuberculosis
     Route: 048
     Dates: start: 20210616, end: 2022
  5. DELAMANID [Concomitant]
     Active Substance: DELAMANID
     Indication: Pulmonary tuberculosis
     Route: 048
     Dates: start: 20210705
  6. ENVIOMYCIN SULFATE [Concomitant]
     Active Substance: ENVIOMYCIN SULFATE
     Indication: Pulmonary tuberculosis
     Route: 065
     Dates: start: 20210616

REACTIONS (2)
  - Suicide attempt [Recovered/Resolved]
  - Optic nerve disorder [Recovering/Resolving]

NARRATIVE: CASE EVENT DATE: 20220711
